FAERS Safety Report 23270355 (Version 1)
Quarter: 2023Q4

REPORT INFORMATION
  Report Type: Spontaneous
  Country: US (occurrence: US)
  Receive Date: 20231207
  Receipt Date: 20231207
  Transmission Date: 20240109
  Serious: No
  Sender: FDA-Public Use
  Company Number: US-BRISTOL-MYERS SQUIBB COMPANY-2023-177416

PATIENT
  Age: 74 Year
  Sex: Male

DRUGS (1)
  1. ONUREG [Suspect]
     Active Substance: AZACITIDINE
     Indication: Product used for unknown indication
     Dosage: DOSE: TAKE 1(300 MG TOTAL)TABLET; FREQUENCY: DAILY FOR DAYS 1-14 FOR A 35 DAY CYCLE
     Route: 048

REACTIONS (1)
  - Off label use [Unknown]
